FAERS Safety Report 4943336-8 (Version None)
Quarter: 2006Q1

REPORT INFORMATION
  Report Type: 
  Country: None (occurrence: None)
  Receive Date: 20060309
  Receipt Date: 20060228
  Transmission Date: 20060701
  Serious: Yes (Other)
  Sender: FDA-Public Use
  Company Number: 2006029975

PATIENT
  Sex: Female
  Weight: 48.5349 kg

DRUGS (2)
  1. ZOLOFT [Suspect]
     Indication: OBSESSIVE-COMPULSIVE DISORDER
     Dosage: 2 YEARS AGO
  2. ASPIRIN [Concomitant]

REACTIONS (19)
  - AMNESIA [None]
  - BRADYCARDIA [None]
  - DEPRESSION [None]
  - DRUG DOSE OMISSION [None]
  - EMOTIONAL DISTRESS [None]
  - FALL [None]
  - FEAR [None]
  - HEART RATE INCREASED [None]
  - INDIFFERENCE [None]
  - INSOMNIA [None]
  - LOSS OF CONSCIOUSNESS [None]
  - LOSS OF EMPLOYMENT [None]
  - MUSCULOSKELETAL STIFFNESS [None]
  - NERVOUSNESS [None]
  - PULSE ABSENT [None]
  - RESPIRATORY ARREST [None]
  - SELF ESTEEM DECREASED [None]
  - SELF-MEDICATION [None]
  - VERBIGERATION [None]
